FAERS Safety Report 24742801 (Version 1)
Quarter: 2024Q4

REPORT INFORMATION
  Report Type: Spontaneous
  Country: US (occurrence: None)
  Receive Date: 20241215
  Receipt Date: 20241215
  Transmission Date: 20250115
  Serious: No
  Sender: Public
  Company Number: None

PATIENT
  Age: 56 Year
  Sex: Female
  Weight: 67.5 kg

DRUGS (7)
  1. BENZONATATE [Suspect]
     Active Substance: BENZONATATE
     Indication: Bronchitis
     Dosage: 2 CAPSULES 3 TIMES A DAY ORAL
     Route: 048
     Dates: start: 20241212, end: 20241214
  2. ROSUVASTATIN [Concomitant]
     Active Substance: ROSUVASTATIN
  3. MAXALT [Concomitant]
     Active Substance: RIZATRIPTAN BENZOATE
  4. Alive! Women^s 50+Ultra Potency Complete Multivitamin [Concomitant]
  5. Daily MegaFood Iron Blood Builder [Concomitant]
  6. Culturelle Probiotics-Digestive Daily Probiotic [Concomitant]
  7. FISH OIL [Concomitant]
     Active Substance: FISH OIL

REACTIONS (2)
  - Arthralgia [None]
  - Sleep disorder [None]

NARRATIVE: CASE EVENT DATE: 20241214
